FAERS Safety Report 12622575 (Version 1)
Quarter: 2016Q3

REPORT INFORMATION
  Report Type: Spontaneous
  Country: ES (occurrence: ES)
  Receive Date: 20160804
  Receipt Date: 20160804
  Transmission Date: 20161109
  Serious: Yes (Death, Other)
  Sender: FDA-Public Use
  Company Number: PHHY2016ES106136

PATIENT
  Sex: Male

DRUGS (1)
  1. DABRAFENIB [Suspect]
     Active Substance: DABRAFENIB
     Indication: METASTATIC MALIGNANT MELANOMA
     Dosage: 150 MG, Q12H
     Route: 065

REACTIONS (3)
  - Melanocytic naevus [Unknown]
  - Second primary malignancy [Unknown]
  - Metastatic neoplasm [Fatal]
